FAERS Safety Report 22066191 (Version 1)
Quarter: 2023Q1

REPORT INFORMATION
  Report Type: Spontaneous
  Country: US (occurrence: None)
  Receive Date: 20230306
  Receipt Date: 20230306
  Transmission Date: 20230417
  Serious: No
  Sender: FDA-Public Use
  Company Number: None

PATIENT
  Age: 3 Year
  Sex: Female
  Weight: 14.85 kg

DRUGS (4)
  1. CETIRIZINE [Suspect]
     Active Substance: CETIRIZINE HYDROCHLORIDE
     Indication: Rhinorrhoea
     Dosage: OTHER QUANTITY : 2.5 MG;?FREQUENCY : AS NEEDED;?
     Route: 048
     Dates: start: 20230302, end: 20230305
  2. IBUPROFEN [Concomitant]
     Active Substance: IBUPROFEN
  3. TARGET BRAND MULTIVITAMIN GUMMY [Concomitant]
  4. APAP [Concomitant]
     Active Substance: ACETAMINOPHEN

REACTIONS (5)
  - Sleep terror [None]
  - Crying [None]
  - Screaming [None]
  - Irritability [None]
  - Therapy interrupted [None]

NARRATIVE: CASE EVENT DATE: 20230304
